FAERS Safety Report 8388227-8 (Version None)
Quarter: 2012Q2

REPORT INFORMATION
  Report Type: 
  Country: None (occurrence: None)
  Receive Date: 20120525
  Receipt Date: 20120522
  Transmission Date: 20120825
  Serious: Yes (Other)
  Sender: FDA-Public Use
  Company Number: BR-BAYER-2012-050924

PATIENT
  Age: 60 Year
  Sex: Male

DRUGS (1)
  1. MOXIFLOXACIN [Suspect]
     Indication: SINUSITIS
     Dosage: 400 MG, QD
     Route: 048
     Dates: start: 20120101

REACTIONS (2)
  - RASH [None]
  - SKIN DISORDER [None]
